FAERS Safety Report 15392233 (Version 2)
Quarter: 2018Q3

REPORT INFORMATION
  Report Type: Spontaneous
  Country: US (occurrence: US)
  Receive Date: 20180917
  Receipt Date: 20180919
  Transmission Date: 20181010
  Serious: Yes (Other)
  Sender: FDA-Public Use
  Company Number: US-PFIZER INC-2018370347

PATIENT
  Age: 68 Year
  Sex: Female
  Weight: 45.35 kg

DRUGS (3)
  1. CHANTIX [Suspect]
     Active Substance: VARENICLINE TARTRATE
     Indication: SMOKING CESSATION THERAPY
     Dosage: UNK
     Route: 048
     Dates: start: 201804, end: 2018
  2. CHANTIX [Suspect]
     Active Substance: VARENICLINE TARTRATE
     Dosage: DAY 8?14, 1 TABLET IN THE MORNING AND 1 IN THE EVENING
     Route: 048
     Dates: start: 2018, end: 2018
  3. CHANTIX [Suspect]
     Active Substance: VARENICLINE TARTRATE
     Dosage: 0.5 MG, 1X/DAY (ONE IN THE EVENING/ONCE A DAY)
     Route: 048
     Dates: start: 2018, end: 201805

REACTIONS (1)
  - Cataract [Unknown]
